FAERS Safety Report 9153060 (Version 1)
Quarter: 2013Q1

REPORT INFORMATION
  Report Type: Spontaneous
  Country: US (occurrence: None)
  Receive Date: 20130301
  Receipt Date: 20130301
  Transmission Date: 20140127
  Serious: Yes (Disabling)
  Sender: FDA-Public Use
  Company Number: None

PATIENT
  Age: 63 Year
  Sex: Female
  Weight: 72.58 kg

DRUGS (1)
  1. LEVAQUIN [Suspect]
     Indication: SINUS DISORDER
     Dates: start: 20081021, end: 20081024

REACTIONS (5)
  - Quality of life decreased [None]
  - Bedridden [None]
  - Pain [None]
  - Depressed mood [None]
  - Toxicity to various agents [None]
